FAERS Safety Report 10019216 (Version 1)
Quarter: 2014Q1

REPORT INFORMATION
  Report Type: Spontaneous
  Country: FR (occurrence: None)
  Receive Date: 20140312
  Receipt Date: 20140312
  Transmission Date: 20141002
  Serious: Yes (Hospitalization)
  Sender: FDA-Public Use
  Company Number: FK201400773

PATIENT
  Age: 48 Year
  Sex: Female

DRUGS (1)
  1. OXALIPLATIN [Suspect]
     Indication: PSEUDOMYXOMA PERITONEI

REACTIONS (3)
  - Histiocytosis haematophagic [None]
  - Intra-abdominal haemorrhage [None]
  - Hypotension [None]
